FAERS Safety Report 6507114-0 (Version None)
Quarter: 2009Q4

REPORT INFORMATION
  Report Type: 
  Country: None (occurrence: None)
  Receive Date: 20091221
  Receipt Date: 20091210
  Transmission Date: 20100525
  Serious: Yes (Hospitalization)
  Sender: FDA-Public Use
  Company Number: PHEH2009US17686

PATIENT
  Age: 49 Year
  Sex: Female
  Weight: 106.12 kg

DRUGS (1)
  1. RECLAST [Suspect]
     Dosage: 5 MG ANNUAL
     Route: 042
     Dates: start: 20091119

REACTIONS (7)
  - CALCIUM DEFICIENCY [None]
  - CHEST DISCOMFORT [None]
  - CHILLS [None]
  - HEADACHE [None]
  - PAIN [None]
  - PYREXIA [None]
  - VITAMIN D DEFICIENCY [None]
